FAERS Safety Report 13704335 (Version 1)
Quarter: 2017Q2

REPORT INFORMATION
  Report Type: Spontaneous
  Country: US (occurrence: US)
  Receive Date: 20170629
  Receipt Date: 20170629
  Transmission Date: 20170830
  Serious: Yes (Disabling)
  Sender: FDA-Public Use
  Company Number: None

PATIENT
  Age: 55 Year
  Sex: Female
  Weight: 67.5 kg

DRUGS (7)
  1. CLARITIN [Concomitant]
     Active Substance: LORATADINE
  2. CALCIUM [Concomitant]
     Active Substance: CALCIUM
  3. RANITIDINE. [Concomitant]
     Active Substance: RANITIDINE
  4. AFRIN SEVERE CONGESTION [Suspect]
     Active Substance: OXYMETAZOLINE HYDROCHLORIDE
     Indication: SINUS CONGESTION
     Dosage: QUANTITY:2 SPRAY(S);OTHER ROUTE:2 SPRAYS EACH NOSTRIL?
     Dates: start: 20170614, end: 20170614
  5. MAGNESIUM [Concomitant]
     Active Substance: MAGNESIUM
  6. MULTIVITAMIN [Concomitant]
     Active Substance: VITAMINS
  7. LOSARTAN. [Concomitant]
     Active Substance: LOSARTAN

REACTIONS (2)
  - Ageusia [None]
  - Anosmia [None]
